FAERS Safety Report 4676005-2 (Version None)
Quarter: 2005Q2

REPORT INFORMATION
  Report Type: 
  Country: None (occurrence: None)
  Receive Date: 20050527
  Receipt Date: 20050316
  Transmission Date: 20051028
  Serious: No
  Sender: FDA-Public Use
  Company Number: 0011380

PATIENT
  Sex: Female

DRUGS (1)
  1. WELLBUTRIN XL [Suspect]
     Indication: DRUG USE FOR UNKNOWN INDICATION
     Route: 048

REACTIONS (1)
  - MOUTH ULCERATION [None]
